FAERS Safety Report 6812230-X (Version None)
Quarter: 2010Q2

REPORT INFORMATION
  Report Type: 
  Country: None (occurrence: None)
  Receive Date: 20100628
  Receipt Date: 20100611
  Transmission Date: 20101027
  Serious: Yes (Life-Threatening, Hospitalization)
  Sender: FDA-Public Use
  Company Number: 2010AL003533

PATIENT
  Age: 74 Year
  Sex: Female

DRUGS (9)
  1. AMLODIPINE BESYLATE [Suspect]
     Dosage: 5 MG;QD;PO
     Route: 048
     Dates: start: 20100520, end: 20100603
  2. WARFARIN SODIUM [Concomitant]
  3. FUROSEMIDE [Concomitant]
  4. AMILORIDE HYDROCHLORIDE [Concomitant]
  5. SIMVASTATIN [Concomitant]
  6. DILTIZZEM [Concomitant]
  7. FOLIC ACID [Concomitant]
  8. METOPROLOL [Concomitant]
  9. OMEPRAZOLE [Concomitant]

REACTIONS (5)
  - DRUG DISPENSING ERROR [None]
  - DYSPNOEA [None]
  - GASTROINTESTINAL HAEMORRHAGE [None]
  - INTERNATIONAL NORMALISED RATIO INCREASED [None]
  - WRONG DRUG ADMINISTERED [None]
